FAERS Safety Report 8080401-3 (Version None)
Quarter: 2012Q1

REPORT INFORMATION
  Report Type: 
  Country: None (occurrence: None)
  Receive Date: 20120130
  Receipt Date: 20120119
  Transmission Date: 20120608
  Serious: Yes (Hospitalization)
  Sender: FDA-Public Use
  Company Number: US-JNJFOC-20120109891

PATIENT
  Sex: Male
  Weight: 38.1 kg

DRUGS (15)
  1. ZENPEP [Concomitant]
  2. LURIDE [Concomitant]
  3. FISH OIL [Concomitant]
  4. VITAMIN D [Concomitant]
  5. NYSTATIN [Concomitant]
  6. PREVACID [Concomitant]
  7. ADALIMUMAB [Concomitant]
     Indication: INFLAMMATORY BOWEL DISEASE
     Dates: start: 20100903, end: 20110301
  8. IRON [Concomitant]
  9. M.V.I. [Concomitant]
  10. ROCALTROL [Concomitant]
  11. FOLIC ACID [Concomitant]
  12. INFLIXIMAB, RECOMBINANT [Suspect]
     Indication: INFLAMMATORY BOWEL DISEASE
     Route: 042
     Dates: start: 20100618, end: 20100730
  13. CALCIUM [Concomitant]
  14. METHOTREXATE [Concomitant]
  15. ASCORBIC ACID [Concomitant]

REACTIONS (1)
  - SMALL INTESTINAL OBSTRUCTION [None]
